FAERS Safety Report 8886948 (Version 2)
Quarter: 2012Q4

REPORT INFORMATION
  Report Type: 
  Country: AR (occurrence: AR)
  Receive Date: 20121105
  Receipt Date: 20121129
  Transmission Date: 20130627
  Serious: Yes (Other)
  Sender: FDA-Public Use
  Company Number: PHHY2012AR097629

PATIENT
  Age: 71 Year
  Sex: Male

DRUGS (1)
  1. ONBREZ [Suspect]
     Indication: EMPHYSEMA

REACTIONS (2)
  - Left ventricle outflow tract obstruction [Not Recovered/Not Resolved]
  - Cough [Not Recovered/Not Resolved]
